FAERS Safety Report 16696728 (Version 1)
Quarter: 2019Q3

REPORT INFORMATION
  Report Type: Spontaneous
  Country: US (occurrence: US)
  Receive Date: 20190626
  Receipt Date: 20190626
  Transmission Date: 20191004
  Serious: No
  Sender: FDA-Public Use
  Company Number: None

PATIENT
  Age: 83 Year
  Sex: Female

DRUGS (1)
  1. XGEVA [Suspect]
     Active Substance: DENOSUMAB
     Indication: HEPATITIS B
     Dosage: ?          OTHER FREQUENCY:EVERY4WKSASDIR ;?
     Route: 058

REACTIONS (1)
  - Visual impairment [None]
